FAERS Safety Report 4623860-8 (Version None)
Quarter: 2005Q1

REPORT INFORMATION
  Report Type: 
  Country: None (occurrence: None)
  Receive Date: 20050330
  Receipt Date: 20050330
  Transmission Date: 20050727
  Serious: Yes (Death)
  Sender: FDA-Public Use
  Company Number: None

PATIENT
  Age: 57 Year
  Sex: Female

DRUGS (8)
  1. NEURONTIN [Suspect]
     Indication: PAIN
     Dosage: 3600MG DAILY, ORAL
     Route: 048
     Dates: start: 19981001, end: 20040401
  2. PROCARDIA [Concomitant]
  3. CELEBREX [Concomitant]
  4. VIOXX [Concomitant]
  5. ROBAXIN [Concomitant]
  6. AMBIEN [Concomitant]
  7. VICODIN [Concomitant]
  8. K-DUR 10 [Concomitant]

REACTIONS (3)
  - CHEST INJURY [None]
  - COMPLETED SUICIDE [None]
  - GUN SHOT WOUND [None]
